FAERS Safety Report 14675457 (Version 1)
Quarter: 2018Q1

REPORT INFORMATION
  Report Type: Spontaneous
  Country: US (occurrence: US)
  Receive Date: 20180323
  Receipt Date: 20180323
  Transmission Date: 20180509
  Serious: Yes (Life-Threatening)
  Sender: FDA-Public Use
  Company Number: US-B.I. PHARMACEUTICALS,INC./RIDGEFIELD-2018-BI-015763

PATIENT
  Sex: Female

DRUGS (2)
  1. GILOTRIF [Suspect]
     Active Substance: AFATINIB
     Indication: PRODUCT USED FOR UNKNOWN INDICATION
     Dosage: FORM STRENGTH: 30 MG; FORMULATION: TABLET? ?ACTION(S) TAKEN WITH PRODUCT: NOT REPORTED
     Route: 065
  2. GILOTRIF [Suspect]
     Active Substance: AFATINIB
     Dosage: FORM STRENGTH: 40MG; FORMULATION: TABLET??ACTION(S) TAKEN WITH PRODUCT: DRUG REDUCED
     Route: 065

REACTIONS (3)
  - Nausea [Not Recovered/Not Resolved]
  - Diarrhoea [Not Recovered/Not Resolved]
  - Malaise [Not Recovered/Not Resolved]
